FAERS Safety Report 8791468 (Version 2)
Quarter: 2012Q4

REPORT INFORMATION
  Report Type: Spontaneous
  Country: US (occurrence: None)
  Receive Date: 20120912
  Receipt Date: 20120925
  Transmission Date: 20130627
  Serious: Yes (Other)
  Sender: FDA-Public Use
  Company Number: USA/USA/12/0025787

PATIENT
  Age: 47 Year
  Sex: Female

DRUGS (8)
  1. CLOPIDOGREL BISULFATE [Suspect]
     Indication: DRUG USE FOR UNKNOWN INDICATION
     Route: 048
     Dates: start: 20120809
  2. ANGIOMAX (BIVALIRUDIN) [Concomitant]
  3. CALCIUM CARBONATE (CALCIUM CARBONATE) [Concomitant]
  4. CRESTOR (ROSUVASTATIN CALCIUM) [Concomitant]
  5. LOPRESSOR (METOPROLOL TARTRATE) [Concomitant]
  6. LASIX (FUROSEMIDE) [Concomitant]
  7. METFORMIN (METFORMIN) [Concomitant]
  8. LOSARTAN (LOSARTAN) [Concomitant]

REACTIONS (1)
  - Thrombosis in device [None]
